FAERS Safety Report 4915959-3 (Version None)
Quarter: 2006Q1

REPORT INFORMATION
  Report Type: 
  Country: None (occurrence: None)
  Receive Date: 20060214
  Receipt Date: 20060130
  Transmission Date: 20060701
  Serious: Yes (Other)
  Sender: FDA-Public Use
  Company Number: US200601003494

PATIENT
  Age: 65 Year
  Sex: Female

DRUGS (4)
  1. XIGRIS [Suspect]
     Indication: SEPSIS
     Dosage: SEE IMAGE
     Route: 042
     Dates: start: 20060119, end: 20060119
  2. XIGRIS [Suspect]
     Indication: SEPSIS
     Dosage: SEE IMAGE
     Route: 042
     Dates: start: 20060119, end: 20060120
  3. XIGRIS [Suspect]
     Indication: SEPSIS
     Dosage: SEE IMAGE
     Route: 042
     Dates: start: 20060122, end: 20060124
  4. XIGRIS [Suspect]

REACTIONS (3)
  - ACCIDENTAL OVERDOSE [None]
  - INAPPROPRIATE SCHEDULE OF DRUG ADMINISTRATION [None]
  - MEDICATION ERROR [None]
